FAERS Safety Report 15283946 (Version 1)
Quarter: 2018Q3

REPORT INFORMATION
  Report Type: Spontaneous
  Country: US (occurrence: US)
  Receive Date: 20180801
  Receipt Date: 20180801
  Transmission Date: 20181010
  Serious: No
  Sender: FDA-Public Use
  Company Number: None

PATIENT
  Age: 65 Year
  Sex: Female
  Weight: 128.8 kg

DRUGS (1)
  1. TRIAMTERENE ? HYDROCHLORTHIAZIDE [Suspect]
     Active Substance: HYDROCHLOROTHIAZIDE\TRIAMTERENE
     Indication: HYPERTENSION
     Route: 048

REACTIONS (2)
  - Pain in extremity [None]
  - Oedema peripheral [None]

NARRATIVE: CASE EVENT DATE: 20180725
